FAERS Safety Report 5603425-1 (Version None)
Quarter: 2008Q1

REPORT INFORMATION
  Report Type: 
  Country: None (occurrence: None)
  Receive Date: 20080123
  Receipt Date: 20080107
  Transmission Date: 20080703
  Serious: Yes (Hospitalization)
  Sender: FDA-Public Use
  Company Number: 100#08#2008-00199

PATIENT
  Age: 65 Year
  Sex: Female

DRUGS (2)
  1. METFORMIN HCL [Suspect]
     Indication: TYPE 2 DIABETES MELLITUS
     Dosage: 500 MG TWICE DAILY
     Dates: start: 19980101
  2. GLYBURIDE [Concomitant]

REACTIONS (10)
  - ANAEMIA MACROCYTIC [None]
  - ANAEMIA MEGALOBLASTIC [None]
  - BLOOD LACTATE DEHYDROGENASE INCREASED [None]
  - CERVICOBRACHIAL SYNDROME [None]
  - DEEP VEIN THROMBOSIS [None]
  - HYPERHOMOCYSTEINAEMIA [None]
  - HYPOAESTHESIA [None]
  - MYASTHENIA GRAVIS [None]
  - THYMOMA [None]
  - VITAMIN B12 DEFICIENCY [None]
